FAERS Safety Report 10024916 (Version 1)
Quarter: 2014Q1

REPORT INFORMATION
  Report Type: Spontaneous
  Country: US (occurrence: US)
  Receive Date: 20140320
  Receipt Date: 20140320
  Transmission Date: 20141002
  Serious: No
  Sender: FDA-Public Use
  Company Number: US-009507513-1403USA009065

PATIENT
  Age: 56 Year
  Sex: Female

DRUGS (1)
  1. PEGINTRON [Suspect]
     Dosage: UNK
     Dates: start: 20140307

REACTIONS (5)
  - Burning sensation [Unknown]
  - Pain [Unknown]
  - Diarrhoea [Unknown]
  - Fatigue [Unknown]
  - Dizziness [Unknown]
